FAERS Safety Report 10141085 (Version 1)
Quarter: 2014Q2

REPORT INFORMATION
  Report Type: Spontaneous
  Country: US (occurrence: US)
  Receive Date: 20140429
  Receipt Date: 20140429
  Transmission Date: 20141212
  Serious: Yes (Other)
  Sender: FDA-Public Use
  Company Number: US-ELI_LILLY_AND_COMPANY-US201404006619

PATIENT
  Sex: Female

DRUGS (4)
  1. EVISTA [Suspect]
     Indication: BREAST CANCER
     Dosage: 60 MG, QD
     Route: 065
  2. PRAVASTATIN [Concomitant]
     Route: 065
  3. RAMIPRIL [Concomitant]
     Route: 065
  4. BABY ASPIRIN [Concomitant]
     Route: 065

REACTIONS (2)
  - Colon cancer [Unknown]
  - Limb discomfort [Unknown]
